FAERS Safety Report 4843819-5 (Version None)
Quarter: 2005Q4

REPORT INFORMATION
  Report Type: 
  Country: None (occurrence: None)
  Receive Date: 20051202
  Receipt Date: 20051123
  Transmission Date: 20060501
  Serious: Yes (Other)
  Sender: FDA-Public Use
  Company Number: US-GLAXOSMITHKLINE-A0584159A

PATIENT
  Age: 53 Year
  Sex: Female

DRUGS (5)
  1. COMBIVIR [Suspect]
     Indication: DRUG USE FOR UNKNOWN INDICATION
     Dosage: 1TAB TWICE PER DAY
     Route: 048
     Dates: start: 20051110
  2. SINGULAIR [Concomitant]
  3. PREVACID [Concomitant]
  4. EVISTA [Concomitant]
  5. ALBUTEROL [Concomitant]
     Indication: ASTHMA
     Route: 055

REACTIONS (2)
  - ASTHMA [None]
  - DIARRHOEA [None]
